FAERS Safety Report 10965789 (Version 1)
Quarter: 2015Q1

REPORT INFORMATION
  Report Type: Spontaneous
  Country: US (occurrence: None)
  Receive Date: 20150226
  Receipt Date: 20150226
  Transmission Date: 20150721
  Serious: Yes (Hospitalization)
  Sender: FDA-Public Use
  Company Number: TPA2009A03048

PATIENT
  Age: 84 Year
  Sex: Female

DRUGS (5)
  1. ANGIOTENSIN II [Suspect]
     Active Substance: ANGIOTENSIN II
     Indication: HYPERTENSION
  2. HCTZ (HYDROCHLOROTHIAZIDE) [Suspect]
     Active Substance: HYDROCHLOROTHIAZIDE
     Indication: HYPERTENSION
  3. TEKTURNA [Suspect]
     Active Substance: ALISKIREN HEMIFUMARATE
     Indication: HYPERTENSION
     Dates: start: 2009, end: 200910
  4. CLONIDINE (CLONIDINE) [Suspect]
     Active Substance: CLONIDINE
     Indication: HYPERTENSION
  5. ULORIC [Suspect]
     Active Substance: FEBUXOSTAT
     Indication: GOUT
     Route: 048
     Dates: start: 2009, end: 200910

REACTIONS (2)
  - Acute kidney injury [None]
  - Hypotension [None]

NARRATIVE: CASE EVENT DATE: 200910
